FAERS Safety Report 7960868-9 (Version None)
Quarter: 2011Q4

REPORT INFORMATION
  Report Type: 
  Country: None (occurrence: None)
  Receive Date: 20111118
  Receipt Date: 20110103
  Transmission Date: 20120403
  Serious: Yes (Other)
  Sender: FDA-Public Use
  Company Number: US-JNJFOC-20110100810

PATIENT
  Age: 7 Year
  Sex: Female
  Weight: 20.4119 kg

DRUGS (2)
  1. PEPCID AC [Suspect]
     Indication: GASTROOESOPHAGEAL REFLUX DISEASE
     Dosage: 20 MG, 2 IN 1 DAY, ORAL
     Route: 048
     Dates: start: 20080101
  2. VITAMIN (VITAMIN NOS) UNKNOWN [Concomitant]

REACTIONS (2)
  - OVERDOSE [None]
  - THERAPEUTIC RESPONSE UNEXPECTED [None]
